FAERS Safety Report 4708305-1 (Version None)
Quarter: 2005Q2

REPORT INFORMATION
  Report Type: 
  Country: None (occurrence: None)
  Receive Date: 20050628
  Receipt Date: 20050617
  Transmission Date: 20051028
  Serious: Yes (Hospitalization)
  Sender: FDA-Public Use
  Company Number: 2005BH000341

PATIENT
  Age: 40 Year
  Sex: Female

DRUGS (1)
  1. TISSEEL VH KIT [Suspect]
     Dates: start: 20050604

REACTIONS (4)
  - ABSCESS [None]
  - BACTERIA URINE IDENTIFIED [None]
  - HEADACHE [None]
  - POSTOPERATIVE FEVER [None]
